FAERS Safety Report 25438167 (Version 2)
Quarter: 2025Q4

REPORT INFORMATION
  Report Type: Report from Study
  Country: CA (occurrence: CA)
  Receive Date: 20250616
  Receipt Date: 20251229
  Transmission Date: 20260118
  Serious: Yes (Hospitalization, Other)
  Sender: APOTEX
  Company Number: CA-PGRTD-E2B_07737965

PATIENT
  Age: 42 Year
  Sex: Male

DRUGS (1)
  1. AMBRISENTAN [Suspect]
     Active Substance: AMBRISENTAN
     Indication: Pulmonary arterial hypertension
     Dosage: 1 EVERY 1 DAYS
     Route: 061

REACTIONS (3)
  - Product dose omission issue [Unknown]
  - Dyspnoea [Unknown]
  - Nasopharyngitis [Unknown]
